FAERS Safety Report 15157579 (Version 1)
Quarter: 2018Q3

REPORT INFORMATION
  Report Type: Report from Study
  Country: KR (occurrence: KR)
  Receive Date: 20180718
  Receipt Date: 20180718
  Transmission Date: 20181010
  Serious: Yes (Death, Hospitalization)
  Sender: FDA-Public Use
  Company Number: KR-ACTELION-A-CH2018-175509

PATIENT
  Age: 51 Year
  Sex: Female

DRUGS (10)
  1. KALLIKREIN [Concomitant]
     Active Substance: KALLIKREIN
     Dosage: 2 DF, QD
     Route: 048
     Dates: start: 20030411, end: 20171102
  2. SERMION [Concomitant]
     Active Substance: NICERGOLINE
     Dosage: 2 DF, QD
     Route: 048
     Dates: start: 20070201, end: 20171102
  3. CILAZAPRIL [Concomitant]
     Active Substance: CILAZAPRIL ANHYDROUS
     Dosage: 1 DF, QD
     Route: 048
     Dates: start: 20121116, end: 20171102
  4. BAMIDE [Concomitant]
     Dosage: 2 DF, QD
     Route: 048
     Dates: start: 20120406, end: 20171102
  5. FEROBA U [Concomitant]
     Dosage: 2 DF, QD
     Route: 048
     Dates: start: 20150910, end: 20171102
  6. CITRACAL F [Concomitant]
     Dosage: 2 DF, QD
     Route: 048
     Dates: start: 20051212, end: 20171102
  7. ADALAT [Concomitant]
     Active Substance: NIFEDIPINE
     Dosage: 1 DF, UNK
     Route: 048
     Dates: start: 20090330, end: 20171102
  8. OPSUMIT [Suspect]
     Active Substance: MACITENTAN
     Indication: PULMONARY ARTERIAL HYPERTENSION
     Dosage: 10 MG, OD
     Route: 048
     Dates: start: 20170824, end: 20171002
  9. PROGRAF [Concomitant]
     Active Substance: TACROLIMUS\TACROLIMUS ANHYDROUS
     Dosage: 2 DF, QD
     Route: 048
     Dates: start: 20060429, end: 20171102
  10. FOLIC ACID. [Concomitant]
     Active Substance: FOLIC ACID
     Dosage: 1 DF, QD
     Route: 048
     Dates: start: 20090724, end: 20171102

REACTIONS (10)
  - Transaminases increased [Unknown]
  - Rash [Unknown]
  - Dyspepsia [Unknown]
  - Dyspnoea exertional [Fatal]
  - Gastrooesophageal reflux disease [Unknown]
  - Condition aggravated [Fatal]
  - Myalgia [Recovered/Resolved]
  - Decreased appetite [Recovered/Resolved]
  - Pulmonary arterial hypertension [Fatal]
  - Chronic gastritis [Unknown]

NARRATIVE: CASE EVENT DATE: 201710
